FAERS Safety Report 6157448-7 (Version None)
Quarter: 2009Q2

REPORT INFORMATION
  Report Type: 
  Country: None (occurrence: None)
  Receive Date: 20090414
  Receipt Date: 20090331
  Transmission Date: 20091009
  Serious: Yes (Hospitalization)
  Sender: FDA-Public Use
  Company Number: 2009000727

PATIENT
  Age: 53 Year
  Sex: Female
  Weight: 63.6 kg

DRUGS (4)
  1. ERLOTINIB (ERLOTINIB) (TABLET) (ERLOTINIB) [Suspect]
     Indication: PANCREATIC CARCINOMA
     Dosage: (100 MG, QD), ORAL
     Route: 048
     Dates: start: 20081211
  2. GEMCITABINE [Suspect]
     Indication: PANCREATIC CARCINOMA
     Dosage: (1000 MG/M2, QW), INTRAVENOUS
     Route: 042
     Dates: start: 20081211
  3. XELODA [Suspect]
     Indication: PANCREATIC CARCINOMA
     Dosage: (1250 MG/M2, BID)
     Dates: start: 20081211
  4. ONDANSETRON HCL [Concomitant]

REACTIONS (3)
  - MUCOSAL INFLAMMATION [None]
  - NAUSEA [None]
  - VOMITING [None]
